FAERS Safety Report 7644365-6 (Version None)
Quarter: 2011Q3

REPORT INFORMATION
  Report Type: 
  Country: None (occurrence: None)
  Receive Date: 20110729
  Receipt Date: 20110725
  Transmission Date: 20111222
  Serious: Yes (Hospitalization, Other)
  Sender: FDA-Public Use
  Company Number: US-ELI_LILLY_AND_COMPANY-US201001002934

PATIENT
  Sex: Male
  Weight: 102.4 kg

DRUGS (9)
  1. ORAL ANTIDIABETICS [Concomitant]
     Dosage: UNK, UNKNOWN
  2. PRANDIN [Concomitant]
     Dosage: 2 MG, TID
  3. LANTUS [Concomitant]
     Dosage: UNK, UNKNOWN
  4. GLUCOPHAGE [Concomitant]
     Dosage: 1000 MG, BID
  5. CHOLESTEROL- AND TRIGLYCERIDE REDUCERS [Concomitant]
     Dosage: UNK, UNKNOWN
  6. BYETTA [Suspect]
     Dosage: UNK, UNKNOWN
     Dates: start: 20060101, end: 20080701
  7. TRICOR [Concomitant]
     Dosage: UNK, QD
  8. TYLENOL                                 /SCH/ [Concomitant]
     Dosage: UNK, UNKNOWN
  9. LEVAQUIN [Concomitant]
     Dosage: 500 MG, QD

REACTIONS (4)
  - PANCREATITIS ACUTE [None]
  - GRANULOMATOUS LIVER DISEASE [None]
  - OFF LABEL USE [None]
  - HYPERLIPIDAEMIA [None]
